FAERS Safety Report 20693732 (Version 1)
Quarter: 2022Q2

REPORT INFORMATION
  Report Type: Spontaneous
  Country: IT (occurrence: IT)
  Receive Date: 20220411
  Receipt Date: 20220411
  Transmission Date: 20220721
  Serious: Yes (Hospitalization, Other)
  Sender: FDA-Public Use
  Company Number: IT-MINISAL02-856539

PATIENT
  Age: 25 Year
  Sex: Female
  Weight: 40 kg

DRUGS (4)
  1. MIRTAZAPINE [Suspect]
     Active Substance: MIRTAZAPINE
     Indication: Product used for unknown indication
     Dosage: 150 MILLIGRAM (TOTAL)
     Route: 048
     Dates: start: 20220129, end: 20220129
  2. QUETIAPINE [Suspect]
     Active Substance: QUETIAPINE
     Indication: Product used for unknown indication
     Dosage: 100 MILLIGRAM (TOTAL)
     Route: 048
     Dates: start: 20220129, end: 20220129
  3. DULOXETINE HYDROCHLORIDE [Suspect]
     Active Substance: DULOXETINE HYDROCHLORIDE
     Indication: Product used for unknown indication
     Dosage: 15 DOSAGE FORM (TOTAL)
     Route: 065
     Dates: start: 20220129, end: 20220129
  4. TRAZODONE HYDROCHLORIDE [Suspect]
     Active Substance: TRAZODONE HYDROCHLORIDE
     Indication: Product used for unknown indication
     Dosage: 7 DOSAGE FORM (TOTAL)
     Route: 048
     Dates: start: 20220129, end: 20220129

REACTIONS (2)
  - Drug abuse [Recovering/Resolving]
  - Suicide attempt [Recovering/Resolving]

NARRATIVE: CASE EVENT DATE: 20220129
